FAERS Safety Report 9778050 (Version 1)
Quarter: 2013Q4

REPORT INFORMATION
  Report Type: Spontaneous
  Country: DE (occurrence: DE)
  Receive Date: 20131223
  Receipt Date: 20131223
  Transmission Date: 20140711
  Serious: Yes (Hospitalization, Other)
  Sender: FDA-Public Use
  Company Number: DE-CELGENEUS-062-21880-13121970

PATIENT
  Age: 78 Year
  Sex: Female
  Weight: 55.7 kg

DRUGS (7)
  1. REVLIMID [Suspect]
     Indication: ACUTE MYELOID LEUKAEMIA
     Route: 048
     Dates: start: 20130711
  2. REVLIMID [Suspect]
     Route: 048
     Dates: start: 20130826
  3. VIDAZA [Suspect]
     Indication: MYELODYSPLASTIC SYNDROME
     Route: 065
     Dates: start: 200910, end: 201005
  4. VIDAZA [Suspect]
     Indication: ACUTE MYELOID LEUKAEMIA
     Route: 065
     Dates: start: 20130711
  5. VIDAZA [Suspect]
     Route: 065
     Dates: start: 20130826
  6. VIDAZA [Suspect]
     Route: 065
     Dates: start: 201101
  7. MOXONIDIN [Concomitant]
     Indication: HYPERTENSION
     Route: 065

REACTIONS (8)
  - Type 2 diabetes mellitus [Unknown]
  - Febrile neutropenia [Recovering/Resolving]
  - Erysipelas [Recovering/Resolving]
  - Pneumonia [Recovering/Resolving]
  - Cellulitis [Unknown]
  - Neutropenia [Unknown]
  - Anaemia [Unknown]
  - Thrombocytopenia [Unknown]
